FAERS Safety Report 6670186-7 (Version None)
Quarter: 2010Q2

REPORT INFORMATION
  Report Type: 
  Country: None (occurrence: None)
  Receive Date: 20100406
  Receipt Date: 20100309
  Transmission Date: 20101027
  Serious: No
  Sender: FDA-Public Use
  Company Number: US-ALLERGAN-1003151US

PATIENT
  Sex: Female

DRUGS (15)
  1. LATISSE [Suspect]
     Indication: GROWTH OF EYELASHES
     Dosage: 1 GTT, QHS
     Dates: start: 20100107
  2. AMBIEN [Concomitant]
  3. ASPIRIN [Concomitant]
  4. BONIVA [Concomitant]
  5. CALCIUM [Concomitant]
  6. CITALOPRAM [Concomitant]
  7. FINACEA [Concomitant]
  8. HORMONES AND RELATED AGENTS [Concomitant]
  9. LAC-HYDRIN                         /00752801/ [Concomitant]
  10. MAGNESIUM [Concomitant]
  11. PREVACID [Concomitant]
  12. PROBIOTIC FEMINA [Concomitant]
  13. PROPRANOLOL [Concomitant]
  14. VITAMIN C                          /00008001/ [Concomitant]
  15. VITAMIN E                          /00110501/ [Concomitant]

REACTIONS (1)
  - EYE IRRITATION [None]
